FAERS Safety Report 10368149 (Version 1)
Quarter: 2014Q3

REPORT INFORMATION
  Report Type: Spontaneous
  Country: US (occurrence: None)
  Receive Date: 20140805
  Receipt Date: 20140805
  Transmission Date: 20150326
  Serious: No
  Sender: FDA-Public Use
  Company Number: US-145532

PATIENT
  Age: 29 Year
  Sex: Male
  Weight: 105 kg

DRUGS (9)
  1. FAMOTIDINE. [Concomitant]
     Active Substance: FAMOTIDINE
  2. METHADONE [Concomitant]
     Active Substance: METHADONE HYDROCHLORIDE
  3. BOTULISM ANTITOXIN [Suspect]
     Active Substance: BOTULISM ANTITOXIN
     Indication: BOTULISM
     Dates: start: 20140317, end: 20140318
  4. HYDROCORTISONE. [Concomitant]
     Active Substance: HYDROCORTISONE
  5. VANCO [Concomitant]
  6. ACETAMINOPHEN. [Concomitant]
     Active Substance: ACETAMINOPHEN
  7. DIPHENHYDRAMINE [Concomitant]
     Active Substance: DIPHENHYDRAMINE
  8. CEFEPIME [Concomitant]
     Active Substance: CEFEPIME\CEFEPIME HYDROCHLORIDE
  9. METRONIDAZOLE. [Concomitant]
     Active Substance: METRONIDAZOLE

REACTIONS (16)
  - Dry mouth [None]
  - Tongue disorder [None]
  - Dyspnoea [None]
  - Fatigue [None]
  - Respiratory rate increased [None]
  - Botulism [None]
  - Asthenia [None]
  - Muscular weakness [None]
  - Endocarditis [None]
  - Heart rate increased [None]
  - Areflexia [None]
  - Dysarthria [None]
  - Staphylococcal sepsis [None]
  - Body temperature decreased [None]
  - Paralysis [None]
  - Dysphagia [None]

NARRATIVE: CASE EVENT DATE: 20140318
